FAERS Safety Report 6553758-X (Version None)
Quarter: 2010Q1

REPORT INFORMATION
  Report Type: 
  Country: None (occurrence: None)
  Receive Date: 20100127
  Receipt Date: 20100119
  Transmission Date: 20100710
  Serious: Yes (Hospitalization)
  Sender: FDA-Public Use
  Company Number: US-BRISTOL-MYERS SQUIBB COMPANY-14940241

PATIENT
  Age: 32 Year
  Sex: Female

DRUGS (3)
  1. CISPLATIN [Suspect]
     Indication: PERITONEAL NEOPLASM
  2. PEMETREXED DISODIUM [Suspect]
     Indication: PERITONEAL NEOPLASM
  3. DEXAMETHASONE [Suspect]
     Indication: PROPHYLAXIS OF NAUSEA AND VOMITING
     Dosage: 4MG 2/D FOR 5 DAYS 8MG/D FOR 8 DAYS
     Route: 048

REACTIONS (1)
  - REVERSIBLE POSTERIOR LEUKOENCEPHALOPATHY SYNDROME [None]
